FAERS Safety Report 24626578 (Version 2)
Quarter: 2025Q1

REPORT INFORMATION
  Report Type: Spontaneous
  Country: US (occurrence: US)
  Receive Date: 20241115
  Receipt Date: 20250301
  Transmission Date: 20250409
  Serious: No
  Sender: SANOFI AVENTIS
  Company Number: US-SA-2024SA331985

PATIENT
  Age: 75 Year
  Sex: Male

DRUGS (2)
  1. DUPIXENT [Suspect]
     Active Substance: DUPILUMAB
     Indication: Neurodermatitis
     Dosage: 300 MG, QOW
     Route: 058
     Dates: start: 20241024
  2. TRIAMCINOLONE [Concomitant]
     Active Substance: TRIAMCINOLONE

REACTIONS (9)
  - Therapeutic response decreased [Unknown]
  - Pruritus [Not Recovered/Not Resolved]
  - Scratch [Not Recovered/Not Resolved]
  - Eye disorder [Unknown]
  - Condition aggravated [Unknown]
  - Limb injury [Unknown]
  - Dry skin [Unknown]
  - Skin exfoliation [Unknown]
  - Incorrect dose administered [Unknown]

NARRATIVE: CASE EVENT DATE: 20241024
